FAERS Safety Report 14415769 (Version 1)
Quarter: 2018Q1

REPORT INFORMATION
  Report Type: Report from Study
  Country: US (occurrence: US)
  Receive Date: 20180122
  Receipt Date: 20180122
  Transmission Date: 20180509
  Serious: Yes (Hospitalization, Other)
  Sender: FDA-Public Use
  Company Number: US-AMGEN-USASL2018006016

PATIENT
  Age: 53 Year
  Sex: Female

DRUGS (1)
  1. REPATHA [Suspect]
     Active Substance: EVOLOCUMAB
     Indication: HYPERCHOLESTEROLAEMIA
     Dosage: 140 MG, Q2WK
     Route: 065
     Dates: start: 2015

REACTIONS (12)
  - Chromaturia [Unknown]
  - Injection site mass [Unknown]
  - Injection site haemorrhage [Unknown]
  - Vomiting [Unknown]
  - Urinary retention [Unknown]
  - Renal disorder [Unknown]
  - Polypectomy [Unknown]
  - Injection site pain [Unknown]
  - Contusion [Unknown]
  - Abdominal distension [Unknown]
  - Pneumonia [Unknown]
  - Injection site swelling [Unknown]

NARRATIVE: CASE EVENT DATE: 2016
